FAERS Safety Report 8366267-2 (Version None)
Quarter: 2012Q2

REPORT INFORMATION
  Report Type: 
  Country: None (occurrence: None)
  Receive Date: 20120517
  Receipt Date: 20120511
  Transmission Date: 20120825
  Serious: Yes (Other)
  Sender: FDA-Public Use
  Company Number: PHHY2012DE040246

PATIENT
  Sex: Female

DRUGS (1)
  1. TOBI [Suspect]
     Dates: start: 20111201, end: 20120301

REACTIONS (2)
  - EPISTAXIS [None]
  - HAEMOPTYSIS [None]
